FAERS Safety Report 4992831-4 (Version None)
Quarter: 2006Q1

REPORT INFORMATION
  Report Type: 
  Country: None (occurrence: None)
  Receive Date: 20060315
  Receipt Date: 20051229
  Transmission Date: 20060701
  Serious: No
  Sender: FDA-Public Use
  Company Number: 2006RL000002

PATIENT
  Sex: Male

DRUGS (1)
  1. OMACOR [Suspect]
     Dosage: 1 GM, PO
     Route: 048
     Dates: start: 20050101

REACTIONS (2)
  - ERUCTATION [None]
  - STOMACH DISCOMFORT [None]
